FAERS Safety Report 7620838-7 (Version None)
Quarter: 2011Q3

REPORT INFORMATION
  Report Type: 
  Country: None (occurrence: None)
  Receive Date: 20110719
  Receipt Date: 20110705
  Transmission Date: 20111222
  Serious: Yes (Hospitalization, Other)
  Sender: FDA-Public Use
  Company Number: JP-WATSON-2011-02458

PATIENT
  Sex: Male

DRUGS (6)
  1. EVIPROSTAT                         /01150001/ [Concomitant]
     Indication: BENIGN PROSTATIC HYPERPLASIA
     Dosage: 3 DOSAGE FORMS, DAILY
     Route: 048
     Dates: start: 20101030
  2. BESACOLIN [Concomitant]
     Indication: BENIGN PROSTATIC HYPERPLASIA
     Dosage: 30 MG, DAILY
     Route: 048
     Dates: start: 20101030
  3. FLIVAS [Concomitant]
     Indication: BENIGN PROSTATIC HYPERPLASIA
     Dosage: 75 MG, DAILY
     Route: 048
     Dates: start: 20101030, end: 20110131
  4. RAPAFLO [Suspect]
     Indication: BENIGN PROSTATIC HYPERPLASIA
  5. URAPIDIL [Concomitant]
     Indication: PRODUCT USED FOR UNKNOWN INDICATION
     Dosage: UNK
     Route: 048
  6. RAPAFLO [Suspect]
     Indication: DYSURIA
     Dosage: 2 MG, TID
     Route: 048
     Dates: start: 20110201

REACTIONS (10)
  - ASPARTATE AMINOTRANSFERASE INCREASED [None]
  - TACHYPNOEA [None]
  - DEHYDRATION [None]
  - ENCEPHALOPATHY [None]
  - UNRESPONSIVE TO STIMULI [None]
  - CIRCULATORY COLLAPSE [None]
  - ALANINE AMINOTRANSFERASE INCREASED [None]
  - CARDIO-RESPIRATORY ARREST [None]
  - SEPTIC SHOCK [None]
  - LIVER DISORDER [None]
